FAERS Safety Report 23878635 (Version 2)
Quarter: 2025Q1

REPORT INFORMATION
  Report Type: Report from Study
  Country: US (occurrence: US)
  Receive Date: 20240521
  Receipt Date: 20250107
  Transmission Date: 20250409
  Serious: Yes (Congenital Anomaly)
  Sender: GILEAD
  Company Number: US-GILEAD-2024-0671876

PATIENT
  Age: 0 Year
  Sex: Male
  Weight: 2.02 kg

DRUGS (4)
  1. TENOFOVIR DISOPROXIL FUMARATE [Suspect]
     Active Substance: TENOFOVIR DISOPROXIL FUMARATE
     Indication: HIV infection
     Dosage: 300 MG, QD
     Route: 064
     Dates: start: 20220901
  2. RITONAVIR [Suspect]
     Active Substance: RITONAVIR
     Indication: Product used for unknown indication
     Dosage: 200 MG, QD
     Route: 064
     Dates: start: 20170414
  3. DARUNAVIR [Suspect]
     Active Substance: DARUNAVIR
     Indication: Product used for unknown indication
     Dosage: 1200 MG, QD
     Route: 064
     Dates: start: 20210716
  4. TIVICAY [Suspect]
     Active Substance: DOLUTEGRAVIR SODIUM
     Indication: Product used for unknown indication
     Dosage: 50 MG, QD
     Route: 064
     Dates: start: 20220901

REACTIONS (4)
  - Scrotal cyst [Unknown]
  - Peritoneal cyst [Unknown]
  - Premature baby [Recovered/Resolved]
  - Foetal exposure during pregnancy [Recovered/Resolved]

NARRATIVE: CASE EVENT DATE: 20240314
